FAERS Safety Report 23848101 (Version 1)
Quarter: 2024Q2

REPORT INFORMATION
  Report Type: Spontaneous
  Country: US (occurrence: None)
  Receive Date: 20240510
  Receipt Date: 20240510
  Transmission Date: 20240716
  Serious: Yes (Death)
  Sender: FDA-Public Use
  Company Number: None

PATIENT
  Age: 76 Year
  Sex: Female

DRUGS (4)
  1. POMALYST [Suspect]
     Active Substance: POMALIDOMIDE
     Indication: Plasma cell myeloma
     Dosage: OTHER FREQUENCY : QD X21/28D;?
     Route: 048
     Dates: start: 20240130, end: 202403
  2. ISATUXIMAB [Concomitant]
     Active Substance: ISATUXIMAB
  3. POMALYST [Concomitant]
     Active Substance: POMALIDOMIDE
  4. DEXAMETHASONE [Concomitant]
     Active Substance: DEXAMETHASONE

REACTIONS (2)
  - Spinal cord compression [None]
  - Hospice care [None]

NARRATIVE: CASE EVENT DATE: 20240510
